FAERS Safety Report 22977158 (Version 5)
Quarter: 2024Q2

REPORT INFORMATION
  Report Type: Report from Study
  Country: US (occurrence: US)
  Receive Date: 20230925
  Receipt Date: 20240403
  Transmission Date: 20240716
  Serious: Yes (Other)
  Sender: FDA-Public Use
  Company Number: US-002147023-NVSC2023US204267

PATIENT
  Sex: Female

DRUGS (2)
  1. KESIMPTA [Suspect]
     Active Substance: OFATUMUMAB
     Indication: Product used for unknown indication
     Dosage: UNK (1ST LOADING DOSE)
     Route: 065
  2. KESIMPTA [Suspect]
     Active Substance: OFATUMUMAB
     Dosage: UNK ( 2ND LOADING DOSE)
     Route: 065

REACTIONS (10)
  - Sarcoidosis [Unknown]
  - Disease progression [Unknown]
  - Condition aggravated [Not Recovered/Not Resolved]
  - Memory impairment [Unknown]
  - Brain fog [Unknown]
  - Pain [Unknown]
  - Muscle disorder [Unknown]
  - Balance disorder [Unknown]
  - Stress [Unknown]
  - Temperature intolerance [Recovered/Resolved]
